FAERS Safety Report 10067947 (Version 2)
Quarter: 2014Q2

REPORT INFORMATION
  Report Type: Report from Study
  Country: DE (occurrence: DE)
  Receive Date: 20140409
  Receipt Date: 20140421
  Transmission Date: 20141212
  Serious: Yes (Life-Threatening, Hospitalization)
  Sender: FDA-Public Use
  Company Number: DE-MERCK-1404DEU004252

PATIENT
  Age: 54 Year
  Sex: Male

DRUGS (10)
  1. VICTRELIS [Suspect]
     Indication: HEPATITIS C
     Dosage: 2400 MG, QD
     Route: 048
     Dates: start: 20120220, end: 20120412
  2. RIBAVIRIN [Suspect]
     Indication: HEPATITIS C
     Dosage: 800 MG, QD
     Route: 048
     Dates: start: 20120123
  3. RIBAVIRIN [Suspect]
     Dosage: 1700 MG, QD
     Route: 048
     Dates: start: 20120206
  4. RIBAVIRIN [Suspect]
     Dosage: 800 MG, QD
     Route: 048
     Dates: start: 20120227, end: 20120412
  5. PEGINTERFERON ALFA-2A [Suspect]
     Indication: HEPATITIS C
     Dosage: 180 MICROGRAM, QW
     Route: 058
     Dates: start: 20120123, end: 20120412
  6. OMEPRAZOLE [Concomitant]
     Indication: GASTRITIS
     Route: 048
  7. REKAWAN [Concomitant]
     Indication: HYPOKALAEMIA
     Route: 048
  8. DEKRISTOL [Concomitant]
     Indication: VITAMIN D DEFICIENCY
     Route: 048
  9. SUMATRIPTAN [Concomitant]
     Indication: MIGRAINE
     Dosage: 50 MG, 1 IN 1 AS REQUIRED
     Route: 048
  10. L-POLAMIDON [Concomitant]
     Indication: DRUG DEPENDENCE
     Dosage: 55 MG, QD
     Route: 048

REACTIONS (2)
  - Bone marrow failure [Recovered/Resolved]
  - Cellulitis [Recovered/Resolved]
